FAERS Safety Report 5460781-5 (Version None)
Quarter: 2007Q3

REPORT INFORMATION
  Report Type: 
  Country: None (occurrence: None)
  Receive Date: 20070919
  Receipt Date: 20070912
  Transmission Date: 20080115
  Serious: No
  Sender: FDA-Public Use
  Company Number: US-BOEHRINGER INGELHEIM PHARMACEUTICALS, INC.-2007-BP-16676BP

PATIENT
  Age: 82 Year
  Sex: Female

DRUGS (3)
  1. ZANTAC 75 [Suspect]
     Indication: DYSPEPSIA
     Route: 048
  2. ZANTAC 75 [Suspect]
  3. VITAMIN CAP [Concomitant]

REACTIONS (1)
  - DRUG INEFFECTIVE [None]
